FAERS Safety Report 4607115-3 (Version None)
Quarter: 2005Q1

REPORT INFORMATION
  Report Type: 
  Country: None (occurrence: None)
  Receive Date: 20050314
  Receipt Date: 20041023
  Transmission Date: 20050727
  Serious: Yes (Death, Hospitalization)
  Sender: FDA-Public Use
  Company Number: CA-AMGEN-US097121

PATIENT
  Sex: Female

DRUGS (1)
  1. ENBREL [Suspect]
     Indication: RHEUMATOID ARTHRITIS
     Route: 058
     Dates: start: 20040331, end: 20040907

REACTIONS (10)
  - CARDIAC ARREST [None]
  - CARDIAC FAILURE [None]
  - CONFUSIONAL STATE [None]
  - EMPHYSEMA [None]
  - PNEUMONIA [None]
  - PNEUMOTHORAX [None]
  - POST PROCEDURAL COMPLICATION [None]
  - PULMONARY BULLA [None]
  - SEPSIS [None]
  - STAPHYLOCOCCAL INFECTION [None]
